FAERS Safety Report 20524433 (Version 2)
Quarter: 2022Q2

REPORT INFORMATION
  Report Type: Spontaneous
  Country: US (occurrence: US)
  Receive Date: 20220228
  Receipt Date: 20220428
  Transmission Date: 20220720
  Serious: No
  Sender: FDA-Public Use
  Company Number: US-SA-SAC20220222000078

PATIENT
  Age: 29 Year
  Sex: Male

DRUGS (2)
  1. DUPIXENT [Suspect]
     Active Substance: DUPILUMAB
     Dosage: 600 MG, 1X
     Route: 058
     Dates: start: 20211021, end: 20211021
  2. DUPIXENT [Suspect]
     Active Substance: DUPILUMAB
     Dosage: 300 MG, QOW
     Route: 058
     Dates: start: 20211105

REACTIONS (2)
  - Skin exfoliation [Unknown]
  - Dry skin [Unknown]

NARRATIVE: CASE EVENT DATE: 20220216
